FAERS Safety Report 7588980-7 (Version None)
Quarter: 2011Q3

REPORT INFORMATION
  Report Type: 
  Country: None (occurrence: None)
  Receive Date: 20110705
  Receipt Date: 20110620
  Transmission Date: 20111222
  Serious: Yes (Hospitalization, Other)
  Sender: FDA-Public Use
  Company Number: PHHY2011IT54459

PATIENT
  Age: 68 Year
  Sex: Female

DRUGS (7)
  1. VALSARTAN [Suspect]
     Dosage: UNK
  2. OMEPRAZOLE [Interacting]
     Dosage: UNK
  3. DOXAZOSIN MESYLATE [Suspect]
     Dosage: UNK
  4. DULOXETINE HYDROCHLORIDE [Interacting]
     Indication: STRESS URINARY INCONTINENCE
     Dosage: 40 MG, BID
     Route: 048
  5. NEBIVOLOL HCL [Suspect]
     Dosage: UNK
  6. RISEDRONATE SODIUM [Suspect]
     Dosage: UNK
  7. METFORMIN HCL [Suspect]
     Dosage: UNK

REACTIONS (6)
  - DYSPNOEA [None]
  - CHEST PAIN [None]
  - DRUG INTERACTION [None]
  - LEFT VENTRICULAR DYSFUNCTION [None]
  - STRESS CARDIOMYOPATHY [None]
  - DISCOMFORT [None]
